FAERS Safety Report 7230480-8 (Version None)
Quarter: 2011Q1

REPORT INFORMATION
  Report Type: 
  Country: None (occurrence: None)
  Receive Date: 20110118
  Receipt Date: 20110110
  Transmission Date: 20110831
  Serious: Yes (Other)
  Sender: FDA-Public Use
  Company Number: US-JNJFOC-20090906023

PATIENT
  Sex: Male

DRUGS (1)
  1. LEVAQUIN [Suspect]
     Indication: BACTERIAL INFECTION
     Route: 048

REACTIONS (9)
  - JOINT INJURY [None]
  - TRIGGER FINGER [None]
  - TENDON INJURY [None]
  - PERIPHERAL SENSORY NEUROPATHY [None]
  - ROTATOR CUFF SYNDROME [None]
  - MUSCLE RUPTURE [None]
  - CARPAL TUNNEL SYNDROME [None]
  - TENDON DISORDER [None]
  - TENOSYNOVITIS [None]
